FAERS Safety Report 23958623 (Version 3)
Quarter: 2025Q4

REPORT INFORMATION
  Report Type: Spontaneous
  Country: EU (occurrence: EU)
  Receive Date: 20240610
  Receipt Date: 20251030
  Transmission Date: 20260118
  Serious: Yes (Hospitalization)
  Sender: TEVA
  Company Number: None

PATIENT
  Age: 70 Year
  Sex: Male

DRUGS (4)
  1. TICAGRELOR [Suspect]
     Active Substance: TICAGRELOR
     Indication: Angioplasty
     Dosage: 90MG X2 PER DAY
     Route: 048
     Dates: start: 20240407, end: 20240416
  2. RAMIPRIL [Suspect]
     Active Substance: RAMIPRIL
     Indication: Angina unstable
     Route: 048
     Dates: start: 20240407, end: 20240412
  3. IOBITRIDOL [Suspect]
     Active Substance: IOBITRIDOL
     Indication: Angiocardiogram
     Dosage: TIME INTERVAL: TOTAL
     Route: 042
     Dates: start: 20240407, end: 20240407
  4. BISOPROLOL [Suspect]
     Active Substance: BISOPROLOL
     Indication: Angina unstable
     Dosage: BISOPROLOL (FUMARATE)
     Route: 048
     Dates: start: 20240331, end: 20240413

REACTIONS (2)
  - Rash maculo-papular [Recovered/Resolved]
  - Eosinophilia [Recovered/Resolved]

NARRATIVE: CASE EVENT DATE: 20240414
